FAERS Safety Report 9815904 (Version 2)
Quarter: 2014Q1

REPORT INFORMATION
  Report Type: Report from Study
  Country: BR (occurrence: BR)
  Receive Date: 20140114
  Receipt Date: 20140203
  Transmission Date: 20141002
  Serious: Yes (Death, Hospitalization)
  Sender: FDA-Public Use
  Company Number: BR-ABBVIE-14P-020-1188883-00

PATIENT
  Sex: Male

DRUGS (1)
  1. HUMIRA [Suspect]
     Indication: RHEUMATOID ARTHRITIS
     Route: 058
     Dates: start: 201210

REACTIONS (4)
  - Hepatic cirrhosis [Fatal]
  - Cardio-respiratory arrest [Fatal]
  - Diabetes mellitus [Unknown]
  - Pain in extremity [Unknown]
